FAERS Safety Report 11516564 (Version 2)
Quarter: 2016Q1

REPORT INFORMATION
  Report Type: Spontaneous
  Country: US (occurrence: US)
  Receive Date: 20150917
  Receipt Date: 20160114
  Transmission Date: 20160525
  Serious: Yes (Hospitalization, Other)
  Sender: FDA-Public Use
  Company Number: US-ASTRAZENECA-2012SE00718

PATIENT
  Age: 45 Year
  Sex: Female
  Weight: 36.3 kg

DRUGS (24)
  1. NEXIUM [Suspect]
     Active Substance: ESOMEPRAZOLE MAGNESIUM
     Indication: GASTROOESOPHAGEAL REFLUX DISEASE
     Route: 048
  2. DIAZEPAM. [Concomitant]
     Active Substance: DIAZEPAM
     Indication: NERVE INJURY
     Route: 048
     Dates: start: 20111216
  3. PROMETHAZINE VC [Concomitant]
     Active Substance: PHENYLEPHRINE HYDROCHLORIDE\PROMETHAZINE HYDROCHLORIDE
     Dosage: 2 TSP FOUR TIMES DAILY PRN
     Dates: start: 20111028
  4. DIAZEPAM. [Concomitant]
     Active Substance: DIAZEPAM
     Indication: NERVE INJURY
     Route: 048
  5. MYLANTA [Concomitant]
     Active Substance: ALUMINUM HYDROXIDE\DIMETHICONE\MAGNESIUM HYDROXIDE
     Indication: GASTROOESOPHAGEAL REFLUX DISEASE
     Route: 048
  6. ENSURE [Concomitant]
     Active Substance: AMINO ACIDS\DEXTROSE\ELECTROLYTES NOS\SOYBEAN OIL\VITAMINS
     Dosage: 240 ML, 1 TWO TIMES DAILY
     Dates: start: 20110620
  7. NICODERM CQ [Concomitant]
     Active Substance: NICOTINE
     Dates: start: 20111202
  8. PROMETHAZINE HYDROCHLORIDE. [Concomitant]
     Active Substance: PROMETHAZINE HYDROCHLORIDE
     Dates: start: 20110323
  9. ELIQUIS [Concomitant]
     Active Substance: APIXABAN
     Indication: ANTICOAGULANT THERAPY
     Route: 048
     Dates: start: 201506
  10. PREMARIN [Concomitant]
     Active Substance: ESTROGENS, CONJUGATED
     Dates: start: 20111028
  11. REMERON [Concomitant]
     Active Substance: MIRTAZAPINE
     Dosage: 1-2 TAB AT BED TIME
     Dates: start: 20111116
  12. PETROLATUM. [Concomitant]
     Active Substance: PETROLATUM
     Dosage: TWICE DAILY
  13. CARAFATE [Concomitant]
     Active Substance: SUCRALFATE
     Dosage: 1 GM, FOUR TIMES DAILY, AS REQUIRED
     Dates: start: 20111024
  14. PROMETHAZINE HYDROCHLORIDE. [Concomitant]
     Active Substance: PROMETHAZINE HYDROCHLORIDE
     Dosage: 50 MG, 1 FOUR TIMES DAILY, PRN
     Dates: start: 20110517
  15. SUCRALFATE. [Concomitant]
     Active Substance: SUCRALFATE
     Indication: GASTROOESOPHAGEAL REFLUX DISEASE
     Route: 048
  16. GABAPENTIN. [Concomitant]
     Active Substance: GABAPENTIN
     Indication: NEURALGIA
     Route: 048
  17. DEMEROL [Concomitant]
     Active Substance: MEPERIDINE HYDROCHLORIDE
     Dosage: 50 MG, 1-2 EVERY 6 HOURS PRN
     Dates: start: 20111116
  18. PERCOCET [Concomitant]
     Active Substance: ACETAMINOPHEN\OXYCODONE HYDROCHLORIDE
     Indication: PAIN
     Dosage: 10/325. 1 FOUR TIMES DAILY
     Route: 048
     Dates: start: 20111202
  19. ROBAXIN [Concomitant]
     Active Substance: METHOCARBAMOL
     Indication: MUSCLE SPASMS
     Route: 048
     Dates: start: 20110701
  20. HYDROCODONE [Concomitant]
     Active Substance: HYDROCODONE
     Indication: PAIN
     Dosage: 8 MG, THREE TIMES DAILY AS NEEDED
     Dates: start: 201505
  21. PROBIOTICS [Concomitant]
     Active Substance: PROBIOTICS NOS
     Indication: COLITIS
     Dosage: DAILY, 100 BILLION
     Route: 048
     Dates: start: 201506
  22. NEXIUM [Suspect]
     Active Substance: ESOMEPRAZOLE MAGNESIUM
     Indication: GASTROOESOPHAGEAL REFLUX DISEASE
     Route: 048
  23. PERCOCET [Concomitant]
     Active Substance: ACETAMINOPHEN\OXYCODONE HYDROCHLORIDE
     Indication: PAIN
     Dosage: 10/325 MG 1 TAB TWICE DAILY AS NEEDED
     Route: 048
     Dates: start: 2013
  24. PROBIOTICS [Concomitant]
     Active Substance: PROBIOTICS NOS
     Indication: IRRITABLE BOWEL SYNDROME
     Dosage: DAILY, 100 BILLION
     Route: 048
     Dates: start: 201506

REACTIONS (13)
  - Fall [Unknown]
  - Cough [Unknown]
  - Ligament sprain [Unknown]
  - Neuropathy peripheral [Unknown]
  - Weight gain poor [Unknown]
  - Thrombosis [Unknown]
  - Exostosis [Unknown]
  - Colitis [Unknown]
  - Pain [Unknown]
  - Drug dose omission [Unknown]
  - Lumbar spinal stenosis [Unknown]
  - Balance disorder [Unknown]
  - Femur fracture [Unknown]

NARRATIVE: CASE EVENT DATE: 2007
